FAERS Safety Report 9433404 (Version 2)
Quarter: 2013Q3

REPORT INFORMATION
  Report Type: Spontaneous
  Country: IT (occurrence: IT)
  Receive Date: 20130731
  Receipt Date: 20130809
  Transmission Date: 20140515
  Serious: Yes (Hospitalization)
  Sender: FDA-Public Use
  Company Number: IT-BAYER-2013-090836

PATIENT
  Age: 56 Year
  Sex: Male

DRUGS (3)
  1. NEXAVAR [Suspect]
     Indication: HEPATOCELLULAR CARCINOMA
     Dosage: DAILY DOSE 400 MG
     Route: 048
     Dates: start: 20120901, end: 20130619
  2. DUROGESIC [Concomitant]
  3. LYRICA [Concomitant]

REACTIONS (3)
  - Ventricular hypokinesia [Recovering/Resolving]
  - Myocardial depression [Recovering/Resolving]
  - Pulmonary congestion [Recovering/Resolving]
